FAERS Safety Report 16935189 (Version 1)
Quarter: 2019Q4

REPORT INFORMATION
  Report Type: Spontaneous
  Country: GB (occurrence: GB)
  Receive Date: 20191018
  Receipt Date: 20191018
  Transmission Date: 20200122
  Serious: Yes (Other)
  Sender: FDA-Public Use
  Company Number: GB-MYLANLABS-2019M1097140

PATIENT
  Age: 45 Year
  Sex: Female
  Weight: 37 kg

DRUGS (9)
  1. AMIODARONE [Interacting]
     Active Substance: AMIODARONE
     Dosage: 200 MILLIGRAM, QD
     Route: 048
     Dates: start: 20190716
  2. BISOPROLOL [Concomitant]
     Active Substance: BISOPROLOL
  3. CARBAMAZEPINE. [Suspect]
     Active Substance: CARBAMAZEPINE
     Indication: PRODUCT USED FOR UNKNOWN INDICATION
  4. LANSOPRAZOLE. [Concomitant]
     Active Substance: LANSOPRAZOLE
  5. ZONISAMIDE. [Concomitant]
     Active Substance: ZONISAMIDE
  6. AMIODARONE [Interacting]
     Active Substance: AMIODARONE
     Indication: VENTRICULAR ARRHYTHMIA
     Dosage: 900MG/24H
     Route: 042
     Dates: start: 20190708, end: 20190711
  7. LEVETIRACETAM. [Concomitant]
     Active Substance: LEVETIRACETAM
  8. DALTEPARIN [Concomitant]
     Active Substance: DALTEPARIN
  9. AMIODARONE [Interacting]
     Active Substance: AMIODARONE
     Indication: VENTRICULAR ARRHYTHMIA
     Dosage: 1200 MILLIGRAM, QD
     Route: 048
     Dates: start: 20190712

REACTIONS (2)
  - Drug interaction [Unknown]
  - Toxicity to various agents [Recovered/Resolved]

NARRATIVE: CASE EVENT DATE: 20190713
